FAERS Safety Report 16647548 (Version 4)
Quarter: 2019Q4

REPORT INFORMATION
  Report Type: Spontaneous
  Country: US (occurrence: US)
  Receive Date: 20190730
  Receipt Date: 20191023
  Transmission Date: 20200122
  Serious: No
  Sender: FDA-Public Use
  Company Number: US-PFIZER INC-2019321773

PATIENT
  Age: 68 Year
  Sex: Female
  Weight: 46.26 kg

DRUGS (2)
  1. PREDNISONE. [Concomitant]
     Active Substance: PREDNISONE
     Dosage: UNK
  2. XELJANZ XR [Suspect]
     Active Substance: TOFACITINIB CITRATE
     Indication: RHEUMATOID ARTHRITIS
     Dosage: 11 MG
     Dates: start: 20190514

REACTIONS (7)
  - Myalgia [Recovered/Resolved]
  - Hair growth abnormal [Unknown]
  - Condition aggravated [Unknown]
  - Headache [Unknown]
  - Drug ineffective [Unknown]
  - Decreased appetite [Unknown]
  - Nail growth abnormal [Unknown]

NARRATIVE: CASE EVENT DATE: 20190514
